FAERS Safety Report 13852611 (Version 4)
Quarter: 2020Q1

REPORT INFORMATION
  Report Type: Spontaneous
  Country: US (occurrence: US)
  Receive Date: 20170809
  Receipt Date: 20200225
  Transmission Date: 20200409
  Serious: No
  Sender: FDA-Public Use
  Company Number: US-PFIZER INC-2017342147

PATIENT
  Age: 72 Year
  Sex: Female

DRUGS (24)
  1. DULOXETINE. [Concomitant]
     Active Substance: DULOXETINE
     Indication: NERVOUSNESS
  2. CYMBALTA [Concomitant]
     Active Substance: DULOXETINE HYDROCHLORIDE
     Dosage: 30 MG  1X DAY
     Route: 048
  3. LANTUS [Concomitant]
     Active Substance: INSULIN GLARGINE
     Dosage: UNK INJECT BY SUBCUTANEOUS ROUTE AS PER INSULIN PROTOCOL
     Route: 058
  4. MIRALAX [Concomitant]
     Active Substance: POLYETHYLENE GLYCOL 3350
     Dosage: 17 G, 1X/DAY[MIXED WITH 8 OZ. WATER, JUICE, SODA, COFFEE OR TEA]
     Route: 048
  5. LYRICA [Suspect]
     Active Substance: PREGABALIN
     Indication: NEURALGIA
     Dosage: 150 MG, ONE EVERY 8 HOURS
     Dates: start: 2016
  6. OMEPRAZOLE. [Concomitant]
     Active Substance: OMEPRAZOLE
     Indication: GASTROOESOPHAGEAL REFLUX DISEASE
     Dosage: 20 MG, 1X/DAY IN MORNING
  7. ROBAXIN [Concomitant]
     Active Substance: METHOCARBAMOL
     Indication: MUSCLE SPASMS
     Dosage: 500 MG 1X DAY
  8. VITAMIN D2 + CALCIUM [Concomitant]
     Dosage: 1 UNK DAILY CALCIUM  600MG COLECALCIFEROL 125MG UNIT
     Route: 048
  9. OMEGA 3/OMEGA 6/OMEGA 9 TRIGLYCERIDES [Concomitant]
     Dosage: 1 DF, DAILY[OMEGA 6 TRIGLYCERIDES:400MG, OMEGA 9 TRIGLYCERIDES: 200MG, OMEGA-3 TRIGLYCERIDES: 400MG]
     Route: 048
  10. SYNTHROID [Concomitant]
     Active Substance: LEVOTHYROXINE SODIUM
     Dosage: UNK
     Route: 048
  11. DULOXETINE. [Concomitant]
     Active Substance: DULOXETINE
     Indication: DEPRESSION
     Dosage: 30 MG, 1X/DAY
     Dates: start: 2016
  12. DULOXETINE. [Concomitant]
     Active Substance: DULOXETINE
     Indication: ANXIETY
  13. LIQUID CALCIUM WITH MAGNESIUM [Concomitant]
     Dosage: 2 CAPFULLS FOR 30 DAYS
     Dates: start: 20171128
  14. LORATADINE. [Concomitant]
     Active Substance: LORATADINE
     Dosage: 10 MG, 1X/DAY
     Route: 048
  15. ISOSORBIDE MONONITRATE. [Concomitant]
     Active Substance: ISOSORBIDE MONONITRATE
     Dosage: 20 MG 1X DAY IN THE MORNING
     Route: 048
  16. LANTUS [Concomitant]
     Active Substance: INSULIN GLARGINE
     Indication: DIABETES MELLITUS
     Dosage: 25UNITS INJECTION A NIGHT AT BEDTIME
  17. LEVOTHYROXINE. [Concomitant]
     Active Substance: LEVOTHYROXINE
     Indication: LIVER DISORDER
  18. NORCO [Concomitant]
     Active Substance: ACETAMINOPHEN\HYDROCODONE BITARTRATE
     Dosage: 1 DF, 4X/DAY (EVERY 6 HOURS, HYDROCODONE BITARTRATE: 10 MG, PARACETAMOL: 325 MG)
     Route: 048
     Dates: start: 20171201
  19. LEVOTHYROXINE. [Concomitant]
     Active Substance: LEVOTHYROXINE
     Indication: RENAL IMPAIRMENT
     Dosage: 50 MG, 1X/DAY
  20. CRESTOR [Concomitant]
     Active Substance: ROSUVASTATIN CALCIUM
     Dosage: 5 MG  1X DAY
     Route: 048
  21. MELATONIN [Concomitant]
     Active Substance: MELATONIN
     Dosage: 10 MG 1X DAY AT BEDTIME
     Route: 048
  22. METHOCARBAMOL. [Concomitant]
     Active Substance: METHOCARBAMOL
     Dosage: 500 MG, 1X DAY AT BEDTIME FOR 30 DAYS
     Route: 048
     Dates: start: 20171004
  23. HYDROCODONE/ACETAMINOPHEN [Concomitant]
     Active Substance: ACETAMINOPHEN\HYDROCODONE
     Indication: PAIN
     Dosage: 10/325MG, 3X/DAY
  24. LORATADINE. [Concomitant]
     Active Substance: LORATADINE
     Indication: SEASONAL ALLERGY
     Dosage: 10 MG, 1X/DAY, ONE AT BEDTIME

REACTIONS (3)
  - Weight increased [Not Recovered/Not Resolved]
  - Gait disturbance [Unknown]
  - Hypoacusis [Unknown]

NARRATIVE: CASE EVENT DATE: 2016
